FAERS Safety Report 11127678 (Version 1)
Quarter: 2015Q2

REPORT INFORMATION
  Report Type: Spontaneous
  Country: IE (occurrence: None)
  Receive Date: 20150519
  Receipt Date: 20150519
  Transmission Date: 20150821
  Serious: Yes (Death, Other)
  Sender: FDA-Public Use
  Company Number: IE2015GSK063075

PATIENT

DRUGS (2)
  1. ZIDOVUDINE (ZIDOVUDINE) [Suspect]
     Active Substance: ZIDOVUDINE
     Indication: HTLV-1 TEST POSITIVE
  2. INTERFERON (INTERFERON) [Concomitant]
     Active Substance: INTERFERON

REACTIONS (3)
  - Lactic acidosis [None]
  - Sepsis [None]
  - T-cell type acute leukaemia [None]
